FAERS Safety Report 9379486 (Version 1)
Quarter: 2013Q2

REPORT INFORMATION
  Report Type: Spontaneous
  Country: US (occurrence: None)
  Receive Date: 20130627
  Receipt Date: 20130627
  Transmission Date: 20140414
  Serious: Yes (Death, Hospitalization)
  Sender: FDA-Public Use
  Company Number: UCM201306-000032

PATIENT
  Age: 51 Year
  Sex: Male

DRUGS (8)
  1. CLONIDINE HCL [Suspect]
  2. PROPOFOL [Suspect]
  3. SEVOFLURANE [Suspect]
  4. NALOXONE [Suspect]
  5. EPINEPHRINE [Suspect]
  6. VASOPRESSIN [Suspect]
     Dosage: 40 UNITS
  7. BENZODIAZEPINE [Suspect]
  8. PHENTOLAMINE [Suspect]
     Route: 042

REACTIONS (6)
  - Ventricular fibrillation [None]
  - Hypokalaemia [None]
  - Hypoxic-ischaemic encephalopathy [None]
  - Hypertension [None]
  - Agitation [None]
  - Tachycardia [None]
